FAERS Safety Report 8974472 (Version 1)
Quarter: 2012Q4

REPORT INFORMATION
  Report Type: 
  Country: US (occurrence: US)
  Receive Date: 20121220
  Receipt Date: 20121220
  Transmission Date: 20130627
  Serious: No
  Sender: FDA-Public Use
  Company Number: US-009507513-1212USA006084

PATIENT
  Age: 71 Year
  Sex: Female
  Weight: 98.87 kg

DRUGS (5)
  1. JANUMET [Suspect]
     Indication: DIABETES MELLITUS
     Dosage: 500/50mg once daily. while on vacation, she was not taking regularly.
     Route: 048
     Dates: start: 2010
  2. JANUMET [Suspect]
     Dosage: UNK
     Route: 048
     Dates: start: 20121211
  3. JANUMET [Suspect]
     Dosage: 1000mg/50mg , two times a day
     Route: 048
     Dates: start: 20121203, end: 201212
  4. CRESTOR [Concomitant]
  5. AVALIDE [Concomitant]

REACTIONS (4)
  - Glycosylated haemoglobin increased [Unknown]
  - Diarrhoea [Not Recovered/Not Resolved]
  - Inappropriate schedule of drug administration [Unknown]
  - Drug administration error [Unknown]
